FAERS Safety Report 14162329 (Version 1)
Quarter: 2017Q4

REPORT INFORMATION
  Report Type: Spontaneous
  Country: CN (occurrence: CN)
  Receive Date: 20171106
  Receipt Date: 20171106
  Transmission Date: 20180321
  Serious: Yes (Other)
  Sender: FDA-Public Use
  Company Number: CN-PFIZER INC-2017474755

PATIENT
  Age: 57 Year
  Sex: Male
  Weight: 53.3 kg

DRUGS (11)
  1. PHARMORUBICIN [Suspect]
     Active Substance: EPIRUBICIN
     Dosage: 50 MG, 1X/DAY
     Route: 043
     Dates: start: 20170106, end: 20170106
  2. PHARMORUBICIN [Suspect]
     Active Substance: EPIRUBICIN
     Dosage: 50 MG, 1X/DAY
     Route: 043
     Dates: start: 20170703, end: 20170703
  3. PHARMORUBICIN [Suspect]
     Active Substance: EPIRUBICIN
     Dosage: 50 MG, 1X/DAY
     Route: 043
     Dates: start: 20160912, end: 20160912
  4. PHARMORUBICIN [Suspect]
     Active Substance: EPIRUBICIN
     Dosage: 50 MG, 1X/DAY
     Route: 043
     Dates: start: 20170605, end: 20170605
  5. PHARMORUBICIN [Suspect]
     Active Substance: EPIRUBICIN
     Dosage: 50 MG, 1X/DAY
     Route: 043
     Dates: start: 20161118, end: 20161118
  6. PHARMORUBICIN [Suspect]
     Active Substance: EPIRUBICIN
     Dosage: 50 MG, 1X/DAY
     Route: 043
     Dates: start: 20170313, end: 20170313
  7. PHARMORUBICIN [Suspect]
     Active Substance: EPIRUBICIN
     Dosage: 50 MG, 1X/DAY
     Route: 043
     Dates: start: 20161118, end: 20161118
  8. PHARMORUBICIN [Suspect]
     Active Substance: EPIRUBICIN
     Indication: BLADDER NEOPLASM
     Dosage: 50 MG, 1X/DAY
     Route: 043
     Dates: start: 20160906, end: 20160906
  9. PHARMORUBICIN [Suspect]
     Active Substance: EPIRUBICIN
     Dosage: 50 MG, 1X/DAY
     Route: 043
     Dates: start: 20160923, end: 20160923
  10. PHARMORUBICIN [Suspect]
     Active Substance: EPIRUBICIN
     Dosage: 50 MG, 1X/DAY
     Route: 043
     Dates: start: 20170424, end: 20170424
  11. PHARMORUBICIN [Suspect]
     Active Substance: EPIRUBICIN
     Dosage: 50 MG, 1X/DAY
     Route: 043
     Dates: start: 20170731, end: 20170731

REACTIONS (1)
  - Pericardial effusion [Recovering/Resolving]

NARRATIVE: CASE EVENT DATE: 20170824
